FAERS Safety Report 25496829 (Version 1)
Quarter: 2025Q3

REPORT INFORMATION
  Report Type: Spontaneous
  Country: GB (occurrence: GB)
  Receive Date: 20250701
  Receipt Date: 20250701
  Transmission Date: 20251021
  Serious: Yes (Hospitalization)
  Sender: INTERCEPT PHARMACEUTICALS
  Company Number: GB-ADVANZ PHARMA-202506004863

PATIENT
  Sex: Female

DRUGS (1)
  1. OCALIVA [Suspect]
     Active Substance: OBETICHOLIC ACID
     Indication: Primary biliary cholangitis
     Route: 048

REACTIONS (2)
  - Hospitalisation [Recovered/Resolved]
  - Product dose omission issue [Recovered/Resolved]
